FAERS Safety Report 13038025 (Version 1)
Quarter: 2016Q4

REPORT INFORMATION
  Report Type: Spontaneous
  Country: US (occurrence: US)
  Receive Date: 20161213
  Receipt Date: 20161213
  Transmission Date: 20170207
  Serious: No
  Sender: FDA-Public Use
  Company Number: None

PATIENT
  Age: 56 Year
  Sex: Female
  Weight: 84.15 kg

DRUGS (15)
  1. THEOPHYLLINE ER [Concomitant]
     Active Substance: THEOPHYLLINE ANHYDROUS
  2. SUDAFED [Concomitant]
     Active Substance: PSEUDOEPHEDRINE HYDROCHLORIDE
  3. ALBUTEROL. [Concomitant]
     Active Substance: ALBUTEROL
  4. LEVAQUIN [Suspect]
     Active Substance: LEVOFLOXACIN
     Indication: BRONCHIAL DISORDER
     Dosage: ?          QUANTITY:1 TABLET(S);?
     Route: 048
     Dates: start: 20160303, end: 20161130
  5. DULERA [Concomitant]
     Active Substance: FORMOTEROL FUMARATE DIHYDRATE\MOMETASONE FUROATE
  6. DIPHENHYDRAMINE. [Concomitant]
     Active Substance: DIPHENHYDRAMINE
  7. PROVENTIL HFA [Concomitant]
     Active Substance: ALBUTEROL SULFATE
  8. AZELASTINE [Concomitant]
     Active Substance: AZELASTINE
  9. BUSPIRONE HCL [Concomitant]
     Active Substance: BUSPIRONE HYDROCHLORIDE
  10. VITAMIN D2 [Concomitant]
     Active Substance: ERGOCALCIFEROL
  11. VIT - C 2-3 [Concomitant]
  12. DIAZAPAM 10 MG GEL [Concomitant]
     Active Substance: DIAZEPAM
  13. NEBULIZER MACHINE [Concomitant]
  14. FLONASE [Concomitant]
     Active Substance: FLUTICASONE PROPIONATE
  15. IPATROPIUM BROMIDE [Concomitant]
     Active Substance: IPRATROPIUM BROMIDE

REACTIONS (2)
  - Hypoaesthesia [None]
  - Paraesthesia [None]

NARRATIVE: CASE EVENT DATE: 20160305
